FAERS Safety Report 16501163 (Version 2)
Quarter: 2019Q3

REPORT INFORMATION
  Report Type: Report from Study
  Country: BR (occurrence: BR)
  Receive Date: 20190701
  Receipt Date: 20190708
  Transmission Date: 20191004
  Serious: Yes (Hospitalization, Other)
  Sender: FDA-Public Use
  Company Number: BR-SA-2019SA176781

PATIENT
  Age: 55 Year
  Sex: Male
  Weight: 85 kg

DRUGS (1)
  1. INSULIN GLARGINE/LIXISENATIDE [Suspect]
     Active Substance: INSULIN GLARGINE\LIXISENATIDE
     Dosage: UNK, QD
     Route: 058
     Dates: start: 20190611

REACTIONS (3)
  - Pancreatitis [Recovering/Resolving]
  - Weight decreased [Recovering/Resolving]
  - Intentional dose omission [Recovering/Resolving]
